FAERS Safety Report 17203545 (Version 3)
Quarter: 2020Q2

REPORT INFORMATION
  Report Type: Spontaneous
  Country: US (occurrence: US)
  Receive Date: 20191226
  Receipt Date: 20200619
  Transmission Date: 20200713
  Serious: No
  Sender: FDA-Public Use
  Company Number: US-CATALYST PHARMACEUTICALS, INC-2019CAT00551

PATIENT
  Age: 59 Year
  Sex: Female
  Weight: 71.2 kg

DRUGS (17)
  1. FLUOXETINE [Concomitant]
     Active Substance: FLUOXETINE HYDROCHLORIDE
     Dosage: 40 MG, 1X/DAY (MORNING)
  2. DULOXETINE. [Concomitant]
     Active Substance: DULOXETINE
     Dosage: 20 MG, 1X/DAY
  3. FIRDAPSE [Suspect]
     Active Substance: AMIFAMPRIDINE
     Dosage: 60 MG, ONCE
     Route: 048
     Dates: start: 20200521, end: 20200521
  4. WELLBUTRIN [Concomitant]
     Active Substance: BUPROPION HYDROCHLORIDE
     Dosage: 300 MG, 1X/DAY (MORNING)
  5. FIRDAPSE [Suspect]
     Active Substance: AMIFAMPRIDINE
     Dosage: 15 MG, 1X/DAY
     Route: 048
     Dates: start: 2019
  6. FIRDAPSE [Suspect]
     Active Substance: AMIFAMPRIDINE
     Dosage: 20 MG, 3X/DAY
     Route: 048
     Dates: end: 20200520
  7. FIRDAPSE [Suspect]
     Active Substance: AMIFAMPRIDINE
     Dosage: 20 MG, 3X/DAY
     Route: 048
     Dates: start: 20200522
  8. WELLBUTRIN [Concomitant]
     Active Substance: BUPROPION HYDROCHLORIDE
     Dosage: 150 MG, 1X/DAY (NIGHT)
  9. OXYBUTYNIN. [Concomitant]
     Active Substance: OXYBUTYNIN CHLORIDE
     Dosage: 10 MG, 1X/DAY
  10. FIRDAPSE [Suspect]
     Active Substance: AMIFAMPRIDINE
     Dosage: 20 MG, 2X/DAY
     Route: 048
     Dates: start: 2019
  11. FIRDAPSE [Suspect]
     Active Substance: AMIFAMPRIDINE
     Dosage: 20 MG, 3X/DAY
     Route: 048
     Dates: start: 2019
  12. MYRBETRIQ [Concomitant]
     Active Substance: MIRABEGRON
     Dosage: 50 MG, 1X/DAY
  13. COMPOUNDED HORMONE CREAM [Concomitant]
     Dosage: UNK, 1X/DAY (NIGHTLY)
  14. CETIRIZINE [Concomitant]
     Active Substance: CETIRIZINE HYDROCHLORIDE
     Dosage: 10 MG, 1X/DAY
  15. FIRDAPSE [Suspect]
     Active Substance: AMIFAMPRIDINE
     Indication: MYASTHENIC SYNDROME
     Dosage: UNK (DOSE INCREASING BY 5 MG EVERY 3 DAYS)
     Route: 048
     Dates: start: 20190923, end: 2019
  16. PYRIDOSTIGMINE [Concomitant]
     Active Substance: PYRIDOSTIGMINE
     Dosage: 60 MG, 3X/DAY
  17. VITAMIN B [Concomitant]
     Active Substance: VITAMIN B
     Dosage: UNK, 1X/MONTH

REACTIONS (9)
  - Chest discomfort [Not Recovered/Not Resolved]
  - Pain in extremity [Not Recovered/Not Resolved]
  - Blood urine present [Not Recovered/Not Resolved]
  - Peripheral coldness [Not Recovered/Not Resolved]
  - Dyspnoea [Recovering/Resolving]
  - Paraesthesia [Not Recovered/Not Resolved]
  - Paraesthesia oral [Not Recovered/Not Resolved]
  - Renal pain [Not Recovered/Not Resolved]
  - Accidental overdose [Recovered/Resolved]

NARRATIVE: CASE EVENT DATE: 2019
